FAERS Safety Report 14430558 (Version 1)
Quarter: 2018Q1

REPORT INFORMATION
  Report Type: Spontaneous
  Country: US (occurrence: US)
  Receive Date: 20180124
  Receipt Date: 20180124
  Transmission Date: 20180509
  Serious: No
  Sender: FDA-Public Use
  Company Number: US-ASTRAZENECA-2018SE08874

PATIENT
  Age: 61 Year
  Sex: Male

DRUGS (3)
  1. REPATHA [Concomitant]
     Active Substance: EVOLOCUMAB
     Dosage: UNKNOWN
     Route: 065
  2. ASPIRIN. [Concomitant]
     Active Substance: ASPIRIN
     Dosage: UNKNOWN
     Route: 065
  3. BRILINTA [Suspect]
     Active Substance: TICAGRELOR
     Indication: STENT PLACEMENT
     Route: 048
     Dates: start: 2014

REACTIONS (3)
  - Traumatic haematoma [Recovered/Resolved]
  - Incorrect drug administration duration [Unknown]
  - Off label use [Unknown]

NARRATIVE: CASE EVENT DATE: 2014
